FAERS Safety Report 7058068-2 (Version None)
Quarter: 2010Q4

REPORT INFORMATION
  Report Type: 
  Country: None (occurrence: None)
  Receive Date: 20101022
  Receipt Date: 20101012
  Transmission Date: 20110411
  Serious: Yes (Hospitalization, Other)
  Sender: FDA-Public Use
  Company Number: JP-PFIZER INC-2010108001

PATIENT
  Age: 47 Year
  Sex: Female
  Weight: 48 kg

DRUGS (15)
  1. ALPRAZOLAM [Suspect]
     Indication: DEPRESSION
     Dosage: 0.8 MG, 2X/DAY
     Route: 048
     Dates: start: 20060101, end: 20100728
  2. ALPRAZOLAM [Suspect]
     Dosage: 0.4 MG, 2X/DAY
     Route: 048
     Dates: start: 20100729, end: 20100809
  3. ALPRAZOLAM [Suspect]
     Dosage: 0.4 MG, 1X/DAY
     Route: 048
     Dates: start: 20100810
  4. LUVOX [Suspect]
     Indication: DEPRESSION
     Dosage: 50 MG, 3X/DAY
     Route: 048
     Dates: start: 20060101, end: 20100728
  5. DEPROMEL [Suspect]
     Indication: DEPRESSION
     Dosage: 50 MG, 1X/DAY
     Route: 048
     Dates: start: 20100729, end: 20100810
  6. DEPROMEL [Suspect]
     Dosage: 25 MG, 1X/DAY
     Route: 048
     Dates: start: 20100810
  7. DEPAS [Suspect]
     Indication: DEPRESSION
     Dosage: 2 MG, 1X/DAY
     Route: 048
     Dates: start: 20100705
  8. TETRAMIDE [Suspect]
     Indication: DEPRESSION
     Dosage: 2X/DAY (30MG/DAY AND 10MG/DAY)
     Route: 048
     Dates: start: 20060101, end: 20100728
  9. TETRAMIDE [Suspect]
     Dosage: 30 MG, 1X/DAY
     Route: 048
     Dates: start: 20100729
  10. ROHYPNOL [Suspect]
     Indication: DEPRESSION
     Dosage: 1 MG, 1X/DAY
     Dates: start: 20060101, end: 20100728
  11. ROHYPNOL [Suspect]
     Dosage: 0.5 MG, 1X/DAY
     Dates: start: 20100729
  12. CANDESARTAN CILEXETIL [Concomitant]
     Dosage: UNK
     Route: 048
  13. GASMOTIN [Concomitant]
     Dosage: 5 MG, 3X/DAY
     Route: 048
     Dates: start: 20100419
  14. AMOBAN [Concomitant]
     Indication: DEPRESSION
     Dosage: 10 MG, 1X/DAY
     Route: 048
     Dates: start: 20060101, end: 20100810
  15. VEGETAMIN B [Concomitant]
     Indication: DEPRESSION
     Dosage: UNK
     Route: 048
     Dates: start: 20100506, end: 20100728

REACTIONS (3)
  - HEPATIC FUNCTION ABNORMAL [None]
  - OEDEMA [None]
  - WEIGHT INCREASED [None]
